FAERS Safety Report 7075015-8 (Version None)
Quarter: 2010Q4

REPORT INFORMATION
  Report Type: 
  Country: None (occurrence: None)
  Receive Date: 20101029
  Receipt Date: 20100108
  Transmission Date: 20110411
  Serious: No
  Sender: FDA-Public Use
  Company Number: US-WYE-H12332409

PATIENT
  Age: 59 Year
  Sex: Female
  Weight: 49.94 kg

DRUGS (2)
  1. ADVIL PM [Suspect]
     Indication: INSOMNIA
     Dosage: 1 TO 2 CAPLETS AS NEEDED
     Route: 048
     Dates: start: 20091001, end: 20091119
  2. ADVIL PM [Suspect]
     Indication: ANALGESIC THERAPY

REACTIONS (1)
  - DRUG EFFECT DECREASED [None]
